FAERS Safety Report 16679607 (Version 1)
Quarter: 2019Q3

REPORT INFORMATION
  Report Type: Spontaneous
  Country: IT (occurrence: IT)
  Receive Date: 20190807
  Receipt Date: 20190807
  Transmission Date: 20191004
  Serious: Yes (Other)
  Sender: FDA-Public Use
  Company Number: IT-MYLANLABS-2019M1073644

PATIENT
  Age: 80 Year
  Sex: Male

DRUGS (2)
  1. LEVOFLOXACIN. [Suspect]
     Active Substance: LEVOFLOXACIN
     Indication: BRONCHITIS
     Dosage: 1 DOSAGE FORM, QD
     Route: 048
     Dates: start: 20190211, end: 20190216
  2. UROREC [Concomitant]
     Active Substance: SILODOSIN
     Dosage: UNK

REACTIONS (2)
  - Pain [Recovering/Resolving]
  - Diffuse vasculitis [Recovering/Resolving]

NARRATIVE: CASE EVENT DATE: 20190216
